FAERS Safety Report 6045243-9 (Version None)
Quarter: 2009Q1

REPORT INFORMATION
  Report Type: 
  Country: None (occurrence: None)
  Receive Date: 20090121
  Receipt Date: 20090108
  Transmission Date: 20090719
  Serious: Yes (Other)
  Sender: FDA-Public Use
  Company Number: PHHY2009FR01044

PATIENT
  Age: 60 Year
  Sex: Female

DRUGS (1)
  1. TRILEPTAL [Suspect]
     Indication: TRIGEMINAL NEURALGIA
     Dosage: 1350 MG/DAY
     Dates: start: 20020101

REACTIONS (3)
  - PARALYSIS [None]
  - SCIATICA [None]
  - SURGERY [None]
